FAERS Safety Report 9312641 (Version 1)
Quarter: 2013Q2

REPORT INFORMATION
  Report Type: Spontaneous
  Country: US (occurrence: US)
  Receive Date: 20130528
  Receipt Date: 20130528
  Transmission Date: 20140414
  Serious: Yes (Hospitalization)
  Sender: FDA-Public Use
  Company Number: US-BRISTOL-MYERS SQUIBB COMPANY-18921544

PATIENT
  Age: 51 Year
  Sex: Female
  Weight: 80.72 kg

DRUGS (5)
  1. BYDUREON [Suspect]
     Indication: TYPE 2 DIABETES MELLITUS
     Dates: start: 20120828
  2. BENAZEPRIL HCL [Concomitant]
     Route: 048
  3. ATENOLOL+HCTZ [Concomitant]
     Dosage: 1DF:50 /25 MG
     Route: 048
  4. SIMVASTATIN [Concomitant]
     Route: 048
  5. GLIMEPIRIDE [Concomitant]
     Route: 048

REACTIONS (2)
  - Pancreatitis necrotising [Unknown]
  - Weight decreased [Unknown]
